FAERS Safety Report 5718804-1 (Version None)
Quarter: 2008Q2

REPORT INFORMATION
  Report Type: 
  Country: None (occurrence: None)
  Receive Date: 20080425
  Receipt Date: 20080415
  Transmission Date: 20081010
  Serious: Yes (Other)
  Sender: FDA-Public Use
  Company Number: US-PFIZER INC-2008034497

PATIENT
  Sex: Female
  Weight: 68.2 kg

DRUGS (7)
  1. CHANTIX [Interacting]
     Indication: SMOKING CESSATION THERAPY
     Route: 048
     Dates: start: 20080409, end: 20080412
  2. ZOLOFT [Suspect]
     Indication: DEPRESSION
  3. ZOLOFT [Suspect]
     Indication: POST-TRAUMATIC STRESS DISORDER
  4. PERCOCET [Interacting]
     Indication: PAIN
  5. CYMBALTA [Concomitant]
  6. XANAX [Concomitant]
  7. SOMA [Concomitant]

REACTIONS (5)
  - DEPRESSION [None]
  - DRUG INTERACTION [None]
  - NAUSEA [None]
  - PAIN [None]
  - SUICIDAL IDEATION [None]
